FAERS Safety Report 17862588 (Version 1)
Quarter: 2020Q2

REPORT INFORMATION
  Report Type: Spontaneous
  Country: US (occurrence: US)
  Receive Date: 20200604
  Receipt Date: 20200604
  Transmission Date: 20200714
  Serious: No
  Sender: FDA-Public Use
  Company Number: US-FOUNDATIONCONSUMERHC-2020-US-004011

PATIENT
  Age: 18 Year
  Sex: Female
  Weight: 56.25 kg

DRUGS (4)
  1. TAKE ACTION [Suspect]
     Active Substance: LEVONORGESTREL
     Indication: POST COITAL CONTRACEPTION
     Dosage: 1.5 MG
     Route: 048
     Dates: start: 20200214, end: 20200214
  2. MIRALAX [Concomitant]
     Active Substance: POLYETHYLENE GLYCOL 3350
  3. OMEPRAZOLE. [Concomitant]
     Active Substance: OMEPRAZOLE
  4. IRON GUMMIES [Concomitant]

REACTIONS (5)
  - Dizziness [Not Recovered/Not Resolved]
  - Balance disorder [Not Recovered/Not Resolved]
  - Headache [Not Recovered/Not Resolved]
  - Vaginal haemorrhage [Recovered/Resolved]
  - Asthenia [Recovered/Resolved]

NARRATIVE: CASE EVENT DATE: 20200220
